FAERS Safety Report 8355530-7 (Version None)
Quarter: 2012Q2

REPORT INFORMATION
  Report Type: 
  Country: None (occurrence: None)
  Receive Date: 20120513
  Receipt Date: 20120430
  Transmission Date: 20120825
  Serious: Yes (Hospitalization)
  Sender: FDA-Public Use
  Company Number: GB-TEVA-335484ISR

PATIENT
  Age: 54 Year
  Sex: Female

DRUGS (7)
  1. METHOTREXATE [Suspect]
     Indication: RHEUMATOID ARTHRITIS
     Route: 048
     Dates: start: 20120101, end: 20120208
  2. OMEPRAZOLE [Concomitant]
     Indication: DYSPEPSIA
     Route: 048
  3. FOLIC ACID [Concomitant]
     Route: 048
  4. ACYCLOVIR [Concomitant]
     Indication: HERPES ZOSTER
     Dosage: REPEAT COURSES
     Route: 048
  5. PREDNISOLONE [Suspect]
     Indication: RHEUMATOID ARTHRITIS
     Route: 048
     Dates: start: 20101110
  6. FLUOXETINE [Concomitant]
     Indication: DEPRESSION
     Route: 048
  7. ACETAMINOPHEN AND CODEINE PHOSPHATE [Concomitant]
     Indication: PAIN MANAGEMENT
     Dosage: 15/500, TWO DOSES FOUR TIMES A DAY WHEN REQUIRED
     Route: 048

REACTIONS (3)
  - CONSTIPATION [None]
  - PANCREATITIS [None]
  - ABDOMINAL PAIN [None]
